FAERS Safety Report 10734150 (Version 2)
Quarter: 2015Q1

REPORT INFORMATION
  Report Type: Report from Study
  Country: AU (occurrence: AU)
  Receive Date: 20150123
  Receipt Date: 20150331
  Transmission Date: 20150721
  Serious: Yes (Hospitalization)
  Sender: FDA-Public Use
  Company Number: AU-GILEAD-2015-0132583

PATIENT
  Age: 64 Year
  Sex: Female
  Weight: 85 kg

DRUGS (24)
  1. FISH OIL [Concomitant]
     Active Substance: FISH OIL
     Indication: PROPHYLAXIS
     Dosage: UNK
     Route: 048
     Dates: start: 2011
  2. CURASH [Concomitant]
     Indication: RASH
     Dosage: UNK
     Route: 050
     Dates: start: 20141010
  3. RITUXIMAB [Suspect]
     Active Substance: RITUXIMAB
     Indication: NON-HODGKIN^S LYMPHOMA UNSPECIFIED HISTOLOGY INDOLENT
     Dosage: 788 MG, CYCLICAL
     Route: 042
     Dates: start: 20140707, end: 20141208
  4. PENTAMIDINE [Concomitant]
     Active Substance: PENTAMIDINE
     Indication: ANTIFUNGAL PROPHYLAXIS
     Dosage: UNK
     Route: 055
     Dates: start: 20140731
  5. RESOLVE PLUS [Concomitant]
     Indication: RASH
     Dosage: UNK
     Route: 061
     Dates: start: 20141128
  6. PANADOL                            /00020001/ [Concomitant]
     Indication: PROPHYLAXIS
     Dosage: UNK
     Route: 048
     Dates: start: 20140707
  7. LORATADINE. [Concomitant]
     Active Substance: LORATADINE
     Indication: RASH
     Dosage: UNK
     Route: 048
     Dates: start: 20140718
  8. HYDROCORTISONE. [Concomitant]
     Active Substance: HYDROCORTISONE
     Indication: PROPHYLAXIS
     Dosage: UNK
     Route: 042
     Dates: start: 20140707
  9. ONDANSETRON [Concomitant]
     Active Substance: ONDANSETRON
     Indication: NAUSEA
     Dosage: UNK
     Route: 048
     Dates: start: 20141106
  10. BENDAMUSTINE [Suspect]
     Active Substance: BENDAMUSTINE
     Indication: NON-HODGKIN^S LYMPHOMA UNSPECIFIED HISTOLOGY INDOLENT
     Dosage: 189 MG, CYCLICAL
     Route: 042
     Dates: start: 20140707, end: 20141209
  11. GLUCOSAMINE + CHONDROITIN          /01430901/ [Concomitant]
     Indication: PAIN PROPHYLAXIS
     Dosage: UNK
     Route: 048
     Dates: start: 201102
  12. SYMBICORT [Concomitant]
     Active Substance: BUDESONIDE\FORMOTEROL FUMARATE DIHYDRATE
     Indication: PROPHYLAXIS
     Dosage: UNK
     Route: 055
     Dates: start: 2007
  13. IDELALISIB [Suspect]
     Active Substance: IDELALISIB
     Indication: NON-HODGKIN^S LYMPHOMA UNSPECIFIED HISTOLOGY INDOLENT
     Dosage: 150 MG, BID
     Route: 048
     Dates: start: 20140707, end: 20150114
  14. SAVLON                             /00011102/ [Concomitant]
     Indication: RASH
     Dosage: UNK
     Route: 061
     Dates: start: 20141020
  15. COCONUT OIL [Concomitant]
     Active Substance: COCONUT OIL
     Indication: RASH
     Dosage: UNK
     Route: 061
     Dates: start: 20141020
  16. INTRAGAM [Concomitant]
     Active Substance: HUMAN IMMUNOGLOBULIN G
     Indication: HYPERGAMMAGLOBULINAEMIA
     Dosage: UNK
     Route: 042
     Dates: start: 20091127
  17. MOBIC [Concomitant]
     Active Substance: MELOXICAM
     Indication: PROPHYLAXIS
     Dosage: UNK
     Route: 048
     Dates: start: 201102
  18. VENTOLIN [Concomitant]
     Active Substance: ALBUTEROL SULFATE
     Indication: PROPHYLAXIS
     Dosage: UNK
     Route: 055
     Dates: start: 2007
  19. XARELTO [Concomitant]
     Active Substance: RIVAROXABAN
     Indication: PULMONARY EMBOLISM
     Dosage: UNK
     Route: 048
     Dates: start: 20140916
  20. PHENERGAN [Concomitant]
     Active Substance: PROMETHAZINE HYDROCHLORIDE
     Indication: PROPHYLAXIS
     Dosage: UNK
     Route: 042
     Dates: start: 20140707
  21. METOCLOPRAMIDE. [Concomitant]
     Active Substance: METOCLOPRAMIDE
     Indication: NAUSEA
     Dosage: UNK
     Route: 048
     Dates: start: 20141007
  22. GENTAMYCIN                         /00047101/ [Concomitant]
     Active Substance: GENTAMICIN
     Indication: PSEUDOMONAS INFECTION
     Dosage: UNK
     Route: 042
     Dates: start: 20141008
  23. IDELALISIB [Suspect]
     Active Substance: IDELALISIB
     Dosage: UNK
     Route: 048
     Dates: start: 20150210
  24. TIMENTIN                           /00371202/ [Concomitant]
     Indication: PSEUDOMONAS INFECTION
     Dosage: UNK
     Route: 042
     Dates: start: 20141008

REACTIONS (2)
  - Neutropenia [Recovered/Resolved]
  - Anaemia [Recovered/Resolved]

NARRATIVE: CASE EVENT DATE: 20150112
